FAERS Safety Report 7146224-4 (Version None)
Quarter: 2010Q4

REPORT INFORMATION
  Report Type: 
  Country: None (occurrence: None)
  Receive Date: 20101208
  Receipt Date: 20101122
  Transmission Date: 20110411
  Serious: No
  Sender: FDA-Public Use
  Company Number: US-B.I. PHARMACEUTICALS,INC./RIDGEFIELD-2010-BP-13178BP

PATIENT
  Age: 84 Week
  Sex: Male

DRUGS (7)
  1. PRADAXA [Suspect]
     Indication: ATRIAL FIBRILLATION
     Dosage: 300 MG
     Route: 048
     Dates: start: 20101117
  2. PRADAXA [Suspect]
     Dosage: 300 MG
     Route: 048
     Dates: start: 20101104, end: 20101111
  3. ARICEPT [Concomitant]
     Indication: DEMENTIA
  4. NAMENDA [Concomitant]
     Indication: DEMENTIA
  5. LASIX [Concomitant]
  6. OMEPRAZOLE [Concomitant]
     Indication: PROPHYLAXIS
  7. LISINOPRIL [Concomitant]
     Dates: end: 20100101

REACTIONS (3)
  - BLOOD PRESSURE ABNORMAL [None]
  - ECCHYMOSIS [None]
  - LIP SWELLING [None]
